FAERS Safety Report 4983254-2 (Version None)
Quarter: 2006Q2

REPORT INFORMATION
  Report Type: 
  Country: None (occurrence: None)
  Receive Date: 20060419
  Receipt Date: 20060405
  Transmission Date: 20061013
  Serious: Yes (Death)
  Sender: FDA-Public Use
  Company Number: 2006RR-01935

PATIENT
  Age: 34 Year
  Sex: Male

DRUGS (8)
  1. FLUOXETINE [Suspect]
  2. CLOZARIL [Suspect]
     Indication: SCHIZOPHRENIA
     Dosage: 600 MG, QD, ORAL
     Route: 048
     Dates: start: 20010319
  3. CHLORPROMAZINE [Concomitant]
  4. FERROUS SULPHATE                  (FERROUS SULFATE) [Concomitant]
  5. ZOPICLONE                   (ZOPICLONE) [Concomitant]
  6. PROCYCLIDINE HYDROCHLORIDE 2MG TAB [Concomitant]
  7. THIAMINE [Concomitant]
  8. PANTOPRAZOLE SODIUM [Concomitant]

REACTIONS (7)
  - ABDOMINAL PAIN [None]
  - ANTIPSYCHOTIC DRUG LEVEL INCREASED [None]
  - DRUG LEVEL INCREASED [None]
  - FAECALOMA [None]
  - ILEUS PARALYTIC [None]
  - INTESTINAL OBSTRUCTION [None]
  - SUDDEN DEATH [None]
